FAERS Safety Report 8734941 (Version 2)
Quarter: 2014Q2

REPORT INFORMATION
  Report Type: Spontaneous
  Country: GB (occurrence: GB)
  Receive Date: 20120821
  Receipt Date: 20140501
  Transmission Date: 20141212
  Serious: Yes (Death, Other)
  Sender: FDA-Public Use
  Company Number: PHHY2012GB071846

PATIENT
  Age: 3 Month
  Sex: Male

DRUGS (1)
  1. DIPHENHYDRAMINE [Suspect]

REACTIONS (2)
  - Hypoxic-ischaemic encephalopathy [Fatal]
  - Circulatory collapse [Unknown]
